FAERS Safety Report 5218571-4 (Version None)
Quarter: 2007Q1

REPORT INFORMATION
  Report Type: 
  Country: None (occurrence: None)
  Receive Date: 20070122
  Receipt Date: 20070115
  Transmission Date: 20070707
  Serious: Yes (Hospitalization)
  Sender: FDA-Public Use
  Company Number: 2006SP008427

PATIENT
  Age: 24 Year
  Sex: Female
  Weight: 53 kg

DRUGS (5)
  1. CELESTAMINE TAB [Suspect]
     Indication: PHARYNGOLARYNGEAL PAIN
     Dosage: 1 DF; QD; PO
     Route: 048
     Dates: start: 20061104, end: 20061104
  2. FLOMOX (CEFCAPENE PIVOXIL HYDROCHLORIDE) [Suspect]
     Indication: PYREXIA
     Dosage: 3 DF; PO
     Route: 048
     Dates: start: 20061104, end: 20061104
  3. LOXONIN (LOXOPROFEN) [Suspect]
     Indication: PYREXIA
     Dosage: 1 DF; PO
     Route: 048
     Dates: start: 20061104, end: 20061104
  4. MUCOSOLVAN (CON.) [Concomitant]
  5. TRANSAMIN (CON.) [Concomitant]

REACTIONS (2)
  - LYMPHOCYTE STIMULATION TEST POSITIVE [None]
  - TOXIC SKIN ERUPTION [None]
